FAERS Safety Report 8238792-6 (Version None)
Quarter: 2012Q1

REPORT INFORMATION
  Report Type: 
  Country: None (occurrence: None)
  Receive Date: 20120326
  Receipt Date: 20120321
  Transmission Date: 20120608
  Serious: Yes (Other)
  Sender: FDA-Public Use
  Company Number: PI-06760

PATIENT
  Age: 30 Year
  Sex: Female

DRUGS (2)
  1. CHLORAPREP [Suspect]
     Indication: THERAPEUTIC SKIN CARE TOPICAL
     Dosage: 26ML, ONCE, TOPICAL
     Route: 061
     Dates: start: 20120222
  2. CHLORAPREP [Suspect]
     Indication: PREOPERATIVE CARE
     Dosage: 26ML, ONCE, TOPICAL
     Route: 061
     Dates: start: 20120222

REACTIONS (8)
  - CHEMICAL BURNS OF EYE [None]
  - PHOTOPHOBIA [None]
  - IMPAIRED DRIVING ABILITY [None]
  - CORNEAL OEDEMA [None]
  - SCLERITIS [None]
  - HEADACHE [None]
  - DRY EYE [None]
  - ACCIDENTAL EXPOSURE [None]
